FAERS Safety Report 8927359 (Version 1)
Quarter: 2012Q4

REPORT INFORMATION
  Report Type: 
  Country: US (occurrence: US)
  Receive Date: 20121127
  Receipt Date: 20121127
  Transmission Date: 20130627
  Serious: Yes (Other)
  Sender: FDA-Public Use
  Company Number: US-BRISTOL-MYERS SQUIBB COMPANY-17142068

PATIENT
  Sex: Female

DRUGS (2)
  1. ABILIFY TABS 5 MG [Suspect]
     Dosage: 5 mg
  2. LEXAPRO [Suspect]

REACTIONS (1)
  - Mania [Unknown]
